FAERS Safety Report 16785148 (Version 1)
Quarter: 2019Q3

REPORT INFORMATION
  Report Type: Spontaneous
  Country: US (occurrence: US)
  Receive Date: 20190909
  Receipt Date: 20190909
  Transmission Date: 20191005
  Serious: No
  Sender: FDA-Public Use
  Company Number: US-DRREDDYS-USA/USA/19/0113815

PATIENT
  Age: 5 Decade
  Sex: Male

DRUGS (2)
  1. ALLOPURINOL. [Suspect]
     Active Substance: ALLOPURINOL
  2. ALLOPURINOL. [Suspect]
     Active Substance: ALLOPURINOL
     Indication: GOUTY TOPHUS

REACTIONS (1)
  - Ichthyosis acquired [Unknown]
